FAERS Safety Report 20715687 (Version 1)
Quarter: 2022Q2

REPORT INFORMATION
  Report Type: Spontaneous
  Country: US (occurrence: US)
  Receive Date: 20220415
  Receipt Date: 20220415
  Transmission Date: 20220720
  Serious: No
  Sender: FDA-Public Use
  Company Number: US-ALLERGAN-2205109US

PATIENT
  Age: 21 Year
  Sex: Female
  Weight: 49.887 kg

DRUGS (1)
  1. LILETTA [Suspect]
     Active Substance: LEVONORGESTREL
     Indication: Product used for unknown indication
     Dosage: 52 MG, SINGLE
     Route: 015
     Dates: start: 20220125, end: 20220125

REACTIONS (1)
  - Uterine spasm [Recovered/Resolved]

NARRATIVE: CASE EVENT DATE: 20220125
